FAERS Safety Report 10024915 (Version 1)
Quarter: 2014Q1

REPORT INFORMATION
  Report Type: Spontaneous
  Country: JP (occurrence: JP)
  Receive Date: 20140320
  Receipt Date: 20140320
  Transmission Date: 20141002
  Serious: Yes (Other)
  Sender: FDA-Public Use
  Company Number: CHPA2014JP003998

PATIENT
  Sex: Female

DRUGS (2)
  1. NICOTINELL TTS [Suspect]
     Indication: SMOKING CESSATION THERAPY
     Dosage: 52.5 MG, UNK
     Route: 062
     Dates: start: 20140307, end: 20140308
  2. ALCOHOL [Concomitant]

REACTIONS (2)
  - Nausea [Unknown]
  - Dizziness [Unknown]
